FAERS Safety Report 12375292 (Version 1)
Quarter: 2016Q2

REPORT INFORMATION
  Report Type: Spontaneous
  Country: US (occurrence: None)
  Receive Date: 20160516
  Receipt Date: 20160516
  Transmission Date: 20160815
  Serious: No
  Sender: FDA-Public Use
  Company Number: None

PATIENT
  Age: 66 Year
  Sex: Male

DRUGS (1)
  1. TETRABENAZINE 12.5MG TAB SUN PHARMA [Suspect]
     Active Substance: TETRABENAZINE
     Indication: PRODUCT USED FOR UNKNOWN INDICATION
     Route: 048
     Dates: start: 20160321, end: 20160512

REACTIONS (2)
  - Illusion [None]
  - Cognitive disorder [None]

NARRATIVE: CASE EVENT DATE: 20160501
